FAERS Safety Report 6101737-9 (Version None)
Quarter: 2009Q1

REPORT INFORMATION
  Report Type: 
  Country: None (occurrence: None)
  Receive Date: 20090304
  Receipt Date: 20090227
  Transmission Date: 20090719
  Serious: Yes (Other)
  Sender: FDA-Public Use
  Company Number: B0555912A

PATIENT
  Age: 12 Year
  Sex: Male

DRUGS (4)
  1. RELENZA [Suspect]
     Indication: INFLUENZA
     Dosage: 10MG PER DAY
     Route: 055
     Dates: start: 20090121, end: 20090121
  2. MUCODYNE [Concomitant]
     Indication: UPPER RESPIRATORY TRACT INFLAMMATION
     Dosage: 250MG PER DAY
     Route: 048
     Dates: start: 20090121
  3. MUCOSOLVAN [Concomitant]
     Indication: UPPER RESPIRATORY TRACT INFLAMMATION
     Dosage: 15MG PER DAY
     Route: 048
     Dates: start: 20090121
  4. MEPTIN [Concomitant]
     Indication: UPPER RESPIRATORY TRACT INFLAMMATION
     Dosage: 25MCG PER DAY
     Route: 048
     Dates: start: 20090121

REACTIONS (2)
  - ABNORMAL BEHAVIOUR [None]
  - RESTLESSNESS [None]
